FAERS Safety Report 4604433-X (Version None)
Quarter: 2005Q1

REPORT INFORMATION
  Report Type: 
  Country: None (occurrence: None)
  Receive Date: 20050215
  Receipt Date: 20041102
  Transmission Date: 20050727
  Serious: Yes (Death)
  Sender: FDA-Public Use
  Company Number: 363598

PATIENT
  Age: 55 Year
  Sex: Male
  Weight: 83 kg

DRUGS (9)
  1. PEGASYS [Suspect]
     Indication: HEPATITIS C
     Dosage: 1 PER 1 WEEK SUBCUTANEOUS
     Route: 058
     Dates: start: 20040301
  2. COPEGUS [Suspect]
     Indication: HEPATITIS C
     Dosage: ORAL
     Route: 048
     Dates: start: 20040301
  3. NORVIR [Concomitant]
  4. ACYCLOVIR [Concomitant]
  5. PAXIL [Concomitant]
  6. D4T (STAVUDINE) [Concomitant]
  7. VIREAD [Concomitant]
  8. DELAVIRDINE (DELAVIRDINE MESYLATE) [Concomitant]
  9. LEXIVA (FOSAMPRENAVIR) [Concomitant]

REACTIONS (4)
  - DEATH [None]
  - NEUTROPHIL COUNT DECREASED [None]
  - PLATELET COUNT DECREASED [None]
  - WHITE BLOOD CELL COUNT DECREASED [None]
